FAERS Safety Report 13005205 (Version 1)
Quarter: 2016Q4

REPORT INFORMATION
  Report Type: Spontaneous
  Country: JP (occurrence: JP)
  Receive Date: 20161207
  Receipt Date: 20161207
  Transmission Date: 20170207
  Serious: Yes (Death, Other)
  Sender: FDA-Public Use
  Company Number: JP-CLINIGEN GROUP PLC/ CLINIGEN HEALTHCARE LTD-E2B_00005342

PATIENT
  Age: 61 Year
  Sex: Male
  Weight: 54 kg

DRUGS (2)
  1. FOSCARNET?SODIUM [Suspect]
     Active Substance: FOSCARNET SODIUM
     Route: 042
     Dates: start: 19970709, end: 19970929
  2. FOSCARNET?SODIUM [Suspect]
     Active Substance: FOSCARNET SODIUM
     Indication: CYTOMEGALOVIRUS INFECTION
     Route: 042
     Dates: start: 19970621, end: 19970708

REACTIONS (5)
  - Hypokalaemia [Recovered/Resolved]
  - Blood lactate dehydrogenase increased [Fatal]
  - Hypercalcaemia [Fatal]
  - Condition aggravated [Fatal]
  - Leukaemia [Fatal]

NARRATIVE: CASE EVENT DATE: 19970508
